FAERS Safety Report 15120298 (Version 2)
Quarter: 2018Q3

REPORT INFORMATION
  Report Type: Spontaneous
  Country: DE (occurrence: DE)
  Receive Date: 20180709
  Receipt Date: 20180724
  Transmission Date: 20181010
  Serious: Yes (Other)
  Sender: FDA-Public Use
  Company Number: DE-TORRENT-00008776

PATIENT
  Sex: Female

DRUGS (9)
  1. FOLIC ACID. [Interacting]
     Active Substance: FOLIC ACID
     Indication: NONINFECTIVE ENCEPHALITIS
     Dosage: UNKNOWN
     Dates: start: 201712
  2. LEVETIRACETAM. [Interacting]
     Active Substance: LEVETIRACETAM
     Indication: EPILEPSY
     Dosage: UNKNOWN
     Route: 048
     Dates: start: 201803
  3. METHOTREXAT [Interacting]
     Active Substance: METHOTREXATE
     Indication: NONINFECTIVE ENCEPHALITIS
     Dosage: UNKNOWN
     Dates: start: 201712
  4. PREDNISOLON [Interacting]
     Active Substance: PREDNISOLONE
     Indication: NONINFECTIVE ENCEPHALITIS
     Dosage: UNKNOWN
     Dates: start: 201712
  5. RANITIDIN [Interacting]
     Active Substance: RANITIDINE HYDROCHLORIDE
     Indication: NONINFECTIVE ENCEPHALITIS
     Dosage: UNKNOWN
     Dates: start: 201712
  6. L?THYROXIN [Interacting]
     Active Substance: LEVOTHYROXINE SODIUM
     Indication: THYROID OPERATION
     Dosage: UNKNOWN
     Dates: start: 1999
  7. DEKRISTOL [Suspect]
     Active Substance: CHOLECALCIFEROL
     Indication: NONINFECTIVE ENCEPHALITIS
     Dosage: UNKNOWN
     Dates: start: 201712
  8. MAGNESIUM [Interacting]
     Active Substance: MAGNESIUM
     Indication: NONINFECTIVE ENCEPHALITIS
     Dosage: UNKNOWN
     Dates: start: 201712
  9. MAXIM (DIENOGEST\ETHINYL ESTRADIOL) [Interacting]
     Active Substance: DIENOGEST\ETHINYL ESTRADIOL
     Indication: PRODUCT USED FOR UNKNOWN INDICATION
     Dosage: UNK
     Route: 048
     Dates: start: 2012

REACTIONS (3)
  - Epilepsy [Unknown]
  - Noninfective encephalitis [Unknown]
  - Drug interaction [Unknown]

NARRATIVE: CASE EVENT DATE: 201712
